FAERS Safety Report 18173622 (Version 4)
Quarter: 2020Q4

REPORT INFORMATION
  Report Type: Report from Study
  Country: None (occurrence: US)
  Receive Date: 20200820
  Receipt Date: 20201207
  Transmission Date: 20210113
  Serious: Yes (Other)
  Sender: FDA-Public Use
  Company Number: US-ABBVIE-20K-163-3528671-00

PATIENT
  Age: 63 Year
  Sex: Female

DRUGS (2)
  1. HUMIRA [Suspect]
     Active Substance: ADALIMUMAB
     Indication: RHEUMATOID ARTHRITIS
     Route: 058
     Dates: start: 20200807
  2. METHOTREXATE. [Suspect]
     Active Substance: METHOTREXATE
     Indication: PRODUCT USED FOR UNKNOWN INDICATION
     Route: 065
     Dates: end: 202010

REACTIONS (21)
  - Foot deformity [Unknown]
  - Joint stiffness [Unknown]
  - Joint swelling [Unknown]
  - Malaise [Recovering/Resolving]
  - Peripheral swelling [Unknown]
  - Decreased appetite [Not Recovered/Not Resolved]
  - Somnolence [Unknown]
  - Injection site bruising [Recovered/Resolved]
  - Pain in extremity [Unknown]
  - Taste disorder [Not Recovered/Not Resolved]
  - Therapeutic response unexpected [Unknown]
  - Impaired self-care [Unknown]
  - Pre-existing condition improved [Unknown]
  - Muscular weakness [Unknown]
  - Hernia pain [Recovering/Resolving]
  - Abdominal discomfort [Not Recovered/Not Resolved]
  - Nausea [Not Recovered/Not Resolved]
  - Paranasal sinus hypersecretion [Unknown]
  - Musculoskeletal stiffness [Unknown]
  - Polymyalgia rheumatica [Unknown]
  - Fatigue [Recovering/Resolving]

NARRATIVE: CASE EVENT DATE: 2020
